FAERS Safety Report 10537953 (Version 2)
Quarter: 2015Q1

REPORT INFORMATION
  Report Type: Spontaneous
  Country: US (occurrence: US)
  Receive Date: 20141023
  Receipt Date: 20150304
  Transmission Date: 20150720
  Serious: No
  Sender: FDA-Public Use
  Company Number: US-PFIZER INC-2014287691

PATIENT
  Age: 55 Year
  Sex: Male
  Weight: 113 kg

DRUGS (4)
  1. GLIMEPIRIDE. [Concomitant]
     Active Substance: GLIMEPIRIDE
     Dosage: UNK
  2. LIPITOR [Concomitant]
     Active Substance: ATORVASTATIN CALCIUM
     Dosage: UNK
  3. NADOLOL. [Suspect]
     Active Substance: NADOLOL
     Indication: VENTRICULAR ARRHYTHMIA
     Dosage: 20 MG, DAILY
     Route: 048
     Dates: start: 200004
  4. METFORMIN [Concomitant]
     Active Substance: METFORMIN HYDROCHLORIDE
     Dosage: UNK

REACTIONS (2)
  - Product quality issue [Recovered/Resolved]
  - Arrhythmia [Recovered/Resolved]
